FAERS Safety Report 8502992-8 (Version None)
Quarter: 2012Q3

REPORT INFORMATION
  Report Type: 
  Country: None (occurrence: None)
  Receive Date: 20120711
  Receipt Date: 20120704
  Transmission Date: 20120928
  Serious: Yes (Other)
  Sender: FDA-Public Use
  Company Number: PHHY2012CA017473

PATIENT
  Sex: Male

DRUGS (2)
  1. SERAX [Concomitant]
  2. GILENYA [Suspect]
     Indication: RELAPSING-REMITTING MULTIPLE SCLEROSIS
     Dosage: 0.5 MG, DAILY
     Route: 048
     Dates: start: 20120217

REACTIONS (10)
  - DEPRESSED MOOD [None]
  - ACNE [None]
  - AGGRESSION [None]
  - RASH GENERALISED [None]
  - AMNESIA [None]
  - MOOD ALTERED [None]
  - PARANOIA [None]
  - URINARY RETENTION [None]
  - HALLUCINATION [None]
  - HYPOAESTHESIA [None]
